FAERS Safety Report 20894509 (Version 1)
Quarter: 2022Q2

REPORT INFORMATION
  Report Type: Spontaneous
  Country: US (occurrence: None)
  Receive Date: 20220527
  Receipt Date: 20220527
  Transmission Date: 20220721
  Serious: Yes (Other)
  Sender: FDA-Public Use
  Company Number: None

PATIENT
  Age: 49 Year
  Sex: Female

DRUGS (1)
  1. CAPECITABINE [Suspect]
     Active Substance: CAPECITABINE
     Dosage: 1000MG BID ORAL?
     Route: 048
     Dates: start: 202204

REACTIONS (5)
  - Diarrhoea [None]
  - Fatigue [None]
  - Neuropathy peripheral [None]
  - Loss of employment [None]
  - Drug eruption [None]

NARRATIVE: CASE EVENT DATE: 20220527
